FAERS Safety Report 6301830-1 (Version None)
Quarter: 2009Q3

REPORT INFORMATION
  Report Type: 
  Country: None (occurrence: None)
  Receive Date: 20090807
  Receipt Date: 20090727
  Transmission Date: 20100115
  Serious: Yes (Hospitalization, Other)
  Sender: FDA-Public Use
  Company Number: US-ROCHE-645970

PATIENT
  Age: 51 Year
  Sex: Male

DRUGS (15)
  1. MYCOPHENOLATE MOFETIL [Suspect]
     Indication: PROPHYLAXIS AGAINST TRANSPLANT REJECTION
     Route: 065
  2. MYCOPHENOLATE MOFETIL [Suspect]
     Dosage: RE-STARTED
     Route: 065
  3. CYCLOSPORINE [Suspect]
     Indication: PROPHYLAXIS AGAINST TRANSPLANT REJECTION
     Route: 065
  4. CYCLOSPORINE [Suspect]
     Route: 065
  5. CYCLOSPORINE [Suspect]
     Dosage: INCREASED DOSE
     Route: 065
  6. CYCLOSPORINE [Suspect]
     Dosage: DOSE MAINTAINED AT THERAPEUTIC RANGE
     Route: 065
  7. PREDNISONE [Suspect]
     Indication: PROPHYLAXIS AGAINST TRANSPLANT REJECTION
     Route: 065
  8. PREDNISONE [Suspect]
     Route: 065
  9. ORTHOCLONE OKT3 [Suspect]
     Indication: PROPHYLAXIS AGAINST TRANSPLANT REJECTION
     Route: 065
  10. AZATHIOPRINE [Suspect]
     Indication: PROPHYLAXIS AGAINST TRANSPLANT REJECTION
     Route: 065
  11. AZATHIOPRINE [Suspect]
     Dosage: INCREASING DOSE
     Route: 065
  12. METHYLPREDNISOLONE [Suspect]
     Indication: PROPHYLAXIS AGAINST TRANSPLANT REJECTION
     Route: 065
  13. RIFABUTIN [Suspect]
     Indication: ANTIBIOTIC THERAPY
     Route: 065
  14. ETHAMBUTOL [Suspect]
     Indication: ANTIBIOTIC THERAPY
     Route: 065
  15. CLARITHROMYCIN [Suspect]
     Indication: ANTIBIOTIC THERAPY
     Route: 065

REACTIONS (14)
  - DIABETES MELLITUS [None]
  - HEART TRANSPLANT REJECTION [None]
  - IMMUNODEFICIENCY [None]
  - INTERVERTEBRAL DISCITIS [None]
  - MALABSORPTION [None]
  - MALNUTRITION [None]
  - MYCOBACTERIUM AVIUM COMPLEX INFECTION [None]
  - MYOPATHY [None]
  - OSTEOMYELITIS [None]
  - PLATELET COUNT DECREASED [None]
  - RENAL FAILURE [None]
  - RENAL TUBULAR NECROSIS [None]
  - SKIN EXFOLIATION [None]
  - WHITE BLOOD CELL COUNT DECREASED [None]
